FAERS Safety Report 7582334-5 (Version None)
Quarter: 2011Q2

REPORT INFORMATION
  Report Type: 
  Country: None (occurrence: None)
  Receive Date: 20110630
  Receipt Date: 20110627
  Transmission Date: 20111010
  Serious: Yes (Hospitalization)
  Sender: FDA-Public Use
  Company Number: HU-AMGEN-HUNSP2011025329

PATIENT
  Sex: Female
  Weight: 100 kg

DRUGS (9)
  1. IMMUNOGLOBULINS [Concomitant]
  2. AMLODIPINE BESYLATE [Concomitant]
     Indication: HYPERTENSION
     Route: 048
  3. HUMULIN M3                         /00646001/ [Concomitant]
     Route: 042
  4. CORTICOSTEROIDS [Concomitant]
  5. VITAMIN D [Concomitant]
     Route: 042
  6. DEXAMETHASONE [Concomitant]
  7. NPLATE [Suspect]
     Indication: IDIOPATHIC THROMBOCYTOPENIC PURPURA
     Dosage: 5 A?G/KG, QWK
     Route: 058
     Dates: start: 20110110, end: 20110217
  8. AZATHIOPRINE [Concomitant]
  9. VALSARTAN [Concomitant]
     Indication: HYPERTENSION
     Route: 048

REACTIONS (1)
  - DEEP VEIN THROMBOSIS [None]
